FAERS Safety Report 17227431 (Version 1)
Quarter: 2020Q1

REPORT INFORMATION
  Report Type: Spontaneous
  Country: CA (occurrence: CA)
  Receive Date: 20200103
  Receipt Date: 20200103
  Transmission Date: 20200409
  Serious: Yes (Other)
  Sender: FDA-Public Use
  Company Number: CA-AUROBINDO-AUR-APL-2019-108312

PATIENT
  Sex: Male
  Weight: 72 kg

DRUGS (1)
  1. TADALAFIL. [Suspect]
     Active Substance: TADALAFIL
     Indication: PULMONARY ARTERIAL HYPERTENSION
     Dosage: 40 MILLIGRAM
     Route: 065

REACTIONS (3)
  - Oesophageal disorder [Recovered/Resolved]
  - Pancreatitis [Recovered/Resolved]
  - Pyloric sphincter insufficiency [Recovered/Resolved]
